FAERS Safety Report 5592017-9 (Version None)
Quarter: 2008Q1

REPORT INFORMATION
  Report Type: 
  Country: None (occurrence: None)
  Receive Date: 20080115
  Receipt Date: 20080108
  Transmission Date: 20080703
  Serious: Yes (Hospitalization, Other)
  Sender: FDA-Public Use
  Company Number: US-PURDUE-USA_2007_0030680

PATIENT
  Age: 42 Year
  Sex: Female

DRUGS (5)
  1. OXYCONTIN [Suspect]
     Indication: BACK PAIN
     Dosage: 20 MG, BID
     Dates: start: 20020101, end: 20031101
  2. SOMA [Concomitant]
     Indication: MUSCLE SPASMS
     Dosage: 350 MG, PRN
  3. PRILOSEC [Concomitant]
     Indication: GASTROOESOPHAGEAL REFLUX DISEASE
     Dosage: 20 MG, BID
  4. EFFEXOR [Concomitant]
     Indication: DEPRESSION
     Dosage: 150 MG, UNK
  5. TOPROL-XL [Concomitant]
     Indication: HYPERTENSION
     Dosage: 50 MG, UNK

REACTIONS (6)
  - ABSCESS LIMB [None]
  - ATAXIA [None]
  - INTENTIONAL DRUG MISUSE [None]
  - MIGRAINE [None]
  - NERVOUS SYSTEM DISORDER [None]
  - RELAPSING FEVER [None]
